FAERS Safety Report 9405981 (Version 3)
Quarter: 2014Q1

REPORT INFORMATION
  Report Type: Spontaneous
  Country: US (occurrence: US)
  Receive Date: 20130717
  Receipt Date: 20140121
  Transmission Date: 20141002
  Serious: Yes (Hospitalization, Other)
  Sender: FDA-Public Use
  Company Number: US-PFIZER INC-2013207688

PATIENT
  Age: 82 Year
  Sex: Female
  Weight: 86.17 kg

DRUGS (3)
  1. LIPITOR [Suspect]
     Indication: BLOOD CHOLESTEROL INCREASED
     Dosage: 40 MG, 1X/DAY
     Route: 048
  2. BABY ASPIRIN [Concomitant]
     Dosage: UNK
  3. COENZYME Q10 [Concomitant]
     Dosage: 100 MG, UNK

REACTIONS (3)
  - Hip fracture [Unknown]
  - Initial insomnia [Unknown]
  - Insomnia [Unknown]
